FAERS Safety Report 18564748 (Version 4)
Quarter: 2021Q4

REPORT INFORMATION
  Report Type: Report from Study
  Country: US (occurrence: US)
  Receive Date: 20201201
  Receipt Date: 20211015
  Transmission Date: 20220303
  Serious: Yes (Life-Threatening, Hospitalization)
  Sender: FDA-Public Use
  Company Number: US-PFIZER INC-2020461924

PATIENT
  Age: 14 Year
  Sex: Male
  Weight: 130.4 kg

DRUGS (11)
  1. VINCRISTINE SULFATE [Suspect]
     Active Substance: VINCRISTINE SULFATE
     Indication: Acute lymphocytic leukaemia
     Dosage: 2 MG, (DAYS 1, 8, 15, 43)
     Route: 042
     Dates: start: 20200914
  2. METHOTREXATE SODIUM [Suspect]
     Active Substance: METHOTREXATE SODIUM
     Indication: Acute lymphocytic leukaemia
     Dosage: 15 MG, (DAYS 36)
     Route: 037
     Dates: start: 20200914
  3. CYTARABINE [Suspect]
     Active Substance: CYTARABINE
     Indication: Acute lymphocytic leukaemia
     Dosage: 190 MG, (DAYS 29-32, 36-39)
     Route: 042
     Dates: start: 20201021
  4. DOXORUBICIN HYDROCHLORIDE [Suspect]
     Active Substance: DOXORUBICIN HYDROCHLORIDE
     Indication: Lymphocytic leukaemia
     Dosage: 63 MG, (DAYS 1,8,15)
     Route: 042
     Dates: start: 20200914
  5. RUXOLITINIB [Suspect]
     Active Substance: RUXOLITINIB
     Indication: Acute lymphocytic leukaemia
     Dosage: 100 MG TABLET, BID (DAYS 1-14, 29-42)
     Route: 048
     Dates: start: 20200914, end: 20201031
  6. RUXOLITINIB [Suspect]
     Active Substance: RUXOLITINIB
     Dosage: 100 MG, BID (DAYS 1-14, 29-42)
     Route: 048
     Dates: start: 20201101
  7. DEXAMETHASONE [Suspect]
     Active Substance: DEXAMETHASONE
     Indication: Acute lymphocytic leukaemia
     Dosage: 13 MG TABLET, (DAYS 1-7, 15-21)
     Route: 048
     Dates: start: 20200914
  8. ASPARAGINASE [Suspect]
     Active Substance: ASPARAGINASE
     Indication: Acute lymphocytic leukaemia
     Dosage: 60000 IU, (DAYS 3,5,7,9,11,15, 43, 45), INJECTION
     Route: 042
     Dates: start: 20200916
  9. CYCLOPHOSPHAMIDE [Suspect]
     Active Substance: CYCLOPHOSPHAMIDE
     Indication: Acute lymphocytic leukaemia
     Dosage: 2530 MG, (DAY 29)
     Route: 042
     Dates: start: 20201021
  10. THIOGUANINE [Suspect]
     Active Substance: THIOGUANINE
     Indication: Acute lymphocytic leukaemia
     Dosage: 40 MG TABLET, (DAYS 29-42)
     Route: 048
     Dates: start: 20201021, end: 20201031
  11. THIOGUANINE [Suspect]
     Active Substance: THIOGUANINE
     Dosage: 40 MG, (DAYS 29-42)
     Route: 048
     Dates: start: 20201101

REACTIONS (3)
  - Pneumonia [Recovered/Resolved]
  - Respiratory distress [Recovered/Resolved]
  - Respiratory distress [Recovered/Resolved]

NARRATIVE: CASE EVENT DATE: 20201031
